FAERS Safety Report 10246251 (Version 3)
Quarter: 2014Q3

REPORT INFORMATION
  Report Type: Report from Study
  Country: US (occurrence: US)
  Receive Date: 20140619
  Receipt Date: 20140718
  Transmission Date: 20150326
  Serious: Yes (Other)
  Sender: FDA-Public Use
  Company Number: US-ROCHE-1418920

PATIENT
  Age: 71 Year
  Sex: Female
  Weight: 59.93 kg

DRUGS (6)
  1. DEXAMETHASONE. [Concomitant]
     Active Substance: DEXAMETHASONE
     Route: 048
     Dates: start: 201107
  2. AVASTIN [Suspect]
     Active Substance: BEVACIZUMAB
     Indication: GLIOBLASTOMA
     Dosage: EVERY OTHER WEEK
     Route: 065
     Dates: start: 20130309
  3. VITAMIN C [Concomitant]
     Active Substance: ASCORBIC ACID
     Route: 048
  4. PROLIA [Concomitant]
     Active Substance: DENOSUMAB
     Indication: OSTEOPOROSIS
     Dosage: AS DIRECTEED
     Route: 065
     Dates: start: 201308
  5. GRAVIOLA [Concomitant]
     Route: 048
     Dates: start: 2012
  6. FISH OIL [Concomitant]
     Active Substance: FISH OIL
     Route: 065

REACTIONS (6)
  - Laryngitis [Not Recovered/Not Resolved]
  - Weight fluctuation [Recovered/Resolved]
  - Blood pressure increased [Recovering/Resolving]
  - Convulsion [Recovered/Resolved]
  - Visual field defect [Not Recovered/Not Resolved]
  - Confusional state [Unknown]

NARRATIVE: CASE EVENT DATE: 201401
